FAERS Safety Report 24898910 (Version 1)
Quarter: 2025Q1

REPORT INFORMATION
  Report Type: Spontaneous
  Country: US (occurrence: None)
  Receive Date: 20250128
  Receipt Date: 20250128
  Transmission Date: 20250408
  Serious: No
  Sender: FDA-CTU
  Company Number: None

PATIENT
  Age: 81 Year
  Sex: Female
  Weight: 71.67 kg

DRUGS (1)
  1. TERIPARATIDE [Suspect]
     Active Substance: TERIPARATIDE
     Indication: Senile osteoporosis
     Dosage: INJECT 420MG SUBCUTANEOUSLY  DAILY AS DIRECTED.
     Route: 058
     Dates: start: 202412

REACTIONS (2)
  - Fracture [None]
  - Therapy interrupted [None]
